FAERS Safety Report 7585523-9 (Version None)
Quarter: 2011Q2

REPORT INFORMATION
  Report Type: 
  Country: None (occurrence: None)
  Receive Date: 20110531
  Receipt Date: 20100719
  Transmission Date: 20111010
  Serious: Yes (Life-Threatening, Hospitalization, Disabling, Other)
  Sender: FDA-Public Use
  Company Number: WAES 1007USA02117

PATIENT
  Age: 78 Year
  Sex: Male
  Weight: 96.6162 kg

DRUGS (10)
  1. MAGNESIUM [Concomitant]
  2. CENTRUM CHEWABLE MULTIVITAMIN MU [Concomitant]
  3. TOPROL-XL [Concomitant]
  4. ZOCOR [Concomitant]
  5. ACTOS [Concomitant]
  6. ASPIRIN [Concomitant]
  7. AVANDIA [Concomitant]
  8. JANUMET [Suspect]
     Indication: TYPE 2 DIABETES MELLITUS
     Dosage: 1000MG/50 MG/BID/PO
     Route: 048
     Dates: start: 20080301, end: 20100719
  9. LASIX [Concomitant]
  10. LOTREL [Concomitant]

REACTIONS (1)
  - PANCREATITIS [None]
